FAERS Safety Report 11064238 (Version 2)
Quarter: 2015Q2

REPORT INFORMATION
  Report Type: Report from Study
  Country: CL (occurrence: CL)
  Receive Date: 20150424
  Receipt Date: 20150428
  Transmission Date: 20150821
  Serious: Yes (Other)
  Sender: FDA-Public Use
  Company Number: CL-MERCK-1504CHL021159

PATIENT
  Age: 74 Year
  Sex: Male
  Weight: 82.7 kg

DRUGS (3)
  1. TRIHEXYPHENIDYL HYDROCHLORIDE. [Concomitant]
     Active Substance: TRIHEXYPHENIDYL HYDROCHLORIDE
     Indication: PARKINSON^S DISEASE
     Dosage: TOTAL DAILY DOSE 2 MG; FREQUENCY: TID
     Route: 048
     Dates: start: 20120101
  2. PEMBROLIZUMAB. [Suspect]
     Active Substance: PEMBROLIZUMAB
     Indication: URETHRAL CANCER METASTATIC
     Dosage: 200 MG, Q3W
     Route: 042
  3. ENALAPRIL MALEATE. [Concomitant]
     Active Substance: ENALAPRIL MALEATE
     Indication: HYPERTENSION
     Dosage: TOTAL DAILY DOSE: 10 MG, FREQUENCY: BID
     Route: 048
     Dates: start: 20130101

REACTIONS (1)
  - Acute kidney injury [Not Recovered/Not Resolved]

NARRATIVE: CASE EVENT DATE: 20150417
